FAERS Safety Report 9657284 (Version 1)
Quarter: 2013Q4

REPORT INFORMATION
  Report Type: Spontaneous
  Country: US (occurrence: US)
  Receive Date: 20131030
  Receipt Date: 20131030
  Transmission Date: 20140711
  Serious: No
  Sender: FDA-Public Use
  Company Number: US-MALLINCKRODT-T201204629

PATIENT
  Age: 74 Year
  Sex: Male

DRUGS (1)
  1. FENTANYL CITRATE [Suspect]
     Dosage: 8

REACTIONS (1)
  - Drug administration error [Unknown]
